FAERS Safety Report 14455643 (Version 2)
Quarter: 2018Q1

REPORT INFORMATION
  Report Type: Spontaneous
  Country: BR (occurrence: BR)
  Receive Date: 20180130
  Receipt Date: 20180131
  Transmission Date: 20180509
  Serious: Yes (Other)
  Sender: FDA-Public Use
  Company Number: BR-AMGEN-BRASP2018011636

PATIENT
  Age: 65 Year
  Sex: Male

DRUGS (1)
  1. ENBREL [Suspect]
     Active Substance: ETANERCEPT
     Indication: PRODUCT USED FOR UNKNOWN INDICATION
     Dosage: UNK
     Route: 065
     Dates: start: 201801, end: 201801

REACTIONS (8)
  - Dengue fever [Unknown]
  - Chikungunya virus infection [Unknown]
  - Blood disorder [Unknown]
  - Pyrexia [Unknown]
  - Pain [Unknown]
  - Fear [Not Recovered/Not Resolved]
  - Malaise [Unknown]
  - Skin discolouration [Unknown]

NARRATIVE: CASE EVENT DATE: 201801
